FAERS Safety Report 18532195 (Version 3)
Quarter: 2020Q4

REPORT INFORMATION
  Report Type: Spontaneous
  Country: IN (occurrence: IN)
  Receive Date: 20201123
  Receipt Date: 20201126
  Transmission Date: 20210114
  Serious: Yes (Hospitalization, Other)
  Sender: FDA-Public Use
  Company Number: IN-VISTAPHARM, INC.-VER202011-002014

PATIENT
  Age: 40 Year
  Sex: Female

DRUGS (1)
  1. GABAPENTIN. [Suspect]
     Active Substance: GABAPENTIN
     Indication: NECK PAIN
     Dosage: UNKNOWN
     Route: 048

REACTIONS (4)
  - Eyelid disorder [Recovered/Resolved]
  - Condition aggravated [Recovered/Resolved]
  - Stevens-Johnson syndrome [Unknown]
  - Symblepharon [Recovered/Resolved]
